FAERS Safety Report 5650574-8 (Version None)
Quarter: 2008Q1

REPORT INFORMATION
  Report Type: 
  Country: None (occurrence: None)
  Receive Date: 20080303
  Receipt Date: 20080219
  Transmission Date: 20080703
  Serious: Yes (Hospitalization)
  Sender: FDA-Public Use
  Company Number: 2008SP003768

PATIENT
  Age: 69 Year
  Sex: Male

DRUGS (2)
  1. DIPROSPAN (BETAMETHASONE SODIUM PHOSPHATE/ DIPIONATE) (BETAMETHASONE S [Suspect]
     Indication: EXOSTOSIS
     Dosage: 1 ML;
     Dates: start: 20070625
  2. LIDOCAINE [Suspect]
     Indication: ANAESTHESIA
     Dosage: 2 ML;
     Dates: start: 20070625

REACTIONS (4)
  - FISTULA [None]
  - NECROSIS [None]
  - OSTEOMYELITIS [None]
  - PURULENCE [None]
